FAERS Safety Report 6367272-8 (Version None)
Quarter: 2009Q3

REPORT INFORMATION
  Report Type: 
  Country: None (occurrence: None)
  Receive Date: 20090921
  Receipt Date: 20090909
  Transmission Date: 20100115
  Serious: Yes (Hospitalization, Other)
  Sender: FDA-Public Use
  Company Number: GB-CELGENEUS-167-21880-09081405

PATIENT
  Sex: Female
  Weight: 83 kg

DRUGS (4)
  1. REVLIMID [Suspect]
     Route: 048
     Dates: start: 20090721, end: 20090806
  2. DEXAMETHASONE [Concomitant]
     Route: 065
     Dates: start: 20090721, end: 20090806
  3. LANSOPRAZOLE [Concomitant]
     Indication: DRUG USE FOR UNKNOWN INDICATION
     Route: 065
     Dates: start: 20090721
  4. DALTEPARIN SODIUM [Concomitant]
     Dosage: 5000 U
     Route: 065
     Dates: start: 20090721, end: 20090806

REACTIONS (6)
  - BLISTER [None]
  - DIARRHOEA [None]
  - FATIGUE [None]
  - LIVER FUNCTION TEST ABNORMAL [None]
  - MOUTH ULCERATION [None]
  - RASH ERYTHEMATOUS [None]
